FAERS Safety Report 12663530 (Version 3)
Quarter: 2016Q3

REPORT INFORMATION
  Report Type: Spontaneous
  Country: IL (occurrence: IL)
  Receive Date: 20160818
  Receipt Date: 20160909
  Transmission Date: 20161109
  Serious: Yes (Hospitalization)
  Sender: FDA-Public Use
  Company Number: IL-PFIZER INC-2016384455

PATIENT
  Age: 79 Year
  Sex: Female

DRUGS (2)
  1. ELELYSO [Suspect]
     Active Substance: TALIGLUCERASE ALFA
     Indication: GAUCHER^S DISEASE TYPE I
     Dosage: 2000 IU, MONTHLY
     Route: 042
     Dates: start: 20090101
  2. CARDILOC [Concomitant]
     Active Substance: BISOPROLOL FUMARATE
     Dosage: UNK

REACTIONS (8)
  - Diarrhoea [Unknown]
  - Dizziness [Unknown]
  - Abdominal pain [Unknown]
  - Loss of consciousness [Unknown]
  - Bradycardia [Unknown]
  - Postoperative wound complication [Recovering/Resolving]
  - Vision blurred [Not Recovered/Not Resolved]
  - Palpitations [Not Recovered/Not Resolved]

NARRATIVE: CASE EVENT DATE: 201608
